FAERS Safety Report 6419747-0 (Version None)
Quarter: 2009Q4

REPORT INFORMATION
  Report Type: 
  Country: None (occurrence: None)
  Receive Date: 20091013
  Receipt Date: 20090611
  Transmission Date: 20100525
  Serious: No
  Sender: FDA-Public Use
  Company Number: 2009BM000130

PATIENT
  Age: 44 Year
  Sex: Female
  Weight: 94.3482 kg

DRUGS (4)
  1. KUVAN [Suspect]
     Indication: PHENYLKETONURIA
     Dosage: 1900 MG;QD;PO; 1000 MG;QD;PO; 900 MG;QD;PO
     Route: 048
     Dates: start: 20090601, end: 20090101
  2. KUVAN [Suspect]
     Indication: PHENYLKETONURIA
     Dosage: 1900 MG;QD;PO; 1000 MG;QD;PO; 900 MG;QD;PO
     Route: 048
     Dates: start: 20090101
  3. KUVAN [Suspect]
     Indication: PHENYLKETONURIA
     Dosage: 1900 MG;QD;PO; 1000 MG;QD;PO; 900 MG;QD;PO
     Route: 048
     Dates: start: 20090101
  4. ACETAMINOPHEN (CON.) [Concomitant]

REACTIONS (4)
  - ABDOMINAL PAIN UPPER [None]
  - HEADACHE [None]
  - MUSCULOSKELETAL PAIN [None]
  - NECK PAIN [None]
